FAERS Safety Report 9854696 (Version 1)
Quarter: 2014Q1

REPORT INFORMATION
  Report Type: Report from Study
  Country: US (occurrence: US)
  Receive Date: 20140130
  Receipt Date: 20140130
  Transmission Date: 20141002
  Serious: Yes (Death)
  Sender: FDA-Public Use
  Company Number: US-ROCHE-1341738

PATIENT
  Age: 87 Year
  Sex: Female

DRUGS (9)
  1. LUCENTIS [Suspect]
     Indication: MACULAR DEGENERATION
     Dosage: LEFT EYE
     Route: 050
     Dates: start: 201007
  2. LUCENTIS [Suspect]
     Dosage: RIGHT EYE
     Route: 050
     Dates: start: 201105
  3. ALENDRONATE [Concomitant]
  4. ADVAIR DISKUS [Concomitant]
     Indication: CHRONIC OBSTRUCTIVE PULMONARY DISEASE
  5. FUROSEMIDE [Concomitant]
  6. ATORVASTATIN [Concomitant]
     Indication: BLOOD CHOLESTEROL
  7. SPIRIVA [Concomitant]
     Indication: CHRONIC OBSTRUCTIVE PULMONARY DISEASE
  8. AMLODIPINE [Concomitant]
     Indication: BLOOD PRESSURE
  9. POTASSIUM CHLORIDE [Concomitant]

REACTIONS (1)
  - Death [Fatal]
